FAERS Safety Report 16808699 (Version 1)
Quarter: 2019Q3

REPORT INFORMATION
  Report Type: Spontaneous
  Country: CN (occurrence: CN)
  Receive Date: 20190916
  Receipt Date: 20190916
  Transmission Date: 20191005
  Serious: Yes (Other)
  Sender: FDA-Public Use
  Company Number: CN-BAXTER-2019BAX017898

PATIENT
  Age: 41 Year
  Sex: Female
  Weight: 59 kg

DRUGS (8)
  1. 0.9% SODIUM CHLORIDE INJECTION [Suspect]
     Active Substance: SODIUM CHLORIDE
     Dosage: 3 CYCLES OF NEOADJUVANT CHEMOTHERAPY. PIRARUBICIN HYDROCHLORIDE + 0.9% NS
     Route: 041
  2. PIRARUBICIN HYDROCHLORIDE [Suspect]
     Active Substance: PIRARUBICIN HYDROCHLORIDE
     Indication: INVASIVE DUCTAL BREAST CARCINOMA
     Dosage: 3 CYCLES OF NEOADJUVANT CHEMOTHERAPY. PIRARUBICIN HYDROCHLORIDE + 0.9% NS
     Route: 041
  3. 0.9% SODIUM CHLORIDE INJECTION [Suspect]
     Active Substance: SODIUM CHLORIDE
     Dosage: FOURTH CYCLE OF NEOADJUVANT CHEMOTHERAPY. ENDOXAN 0.8 GRAMS + 0.9% NS
     Route: 041
     Dates: start: 20190817, end: 20190817
  4. 0.9% SODIUM CHLORIDE INJECTION [Suspect]
     Active Substance: SODIUM CHLORIDE
     Dosage: FOURTH CYCLE OF NEOADJUVANT CHEMOTHERAPY. PIRARUBICIN HYDROCHLORIDE 80 MG + 0.9% NS
     Route: 041
     Dates: start: 20190817, end: 20190817
  5. PIRARUBICIN HYDROCHLORIDE [Suspect]
     Active Substance: PIRARUBICIN HYDROCHLORIDE
     Dosage: FOURTH CYCLE OF NEOADJUVANT CHEMOTHERAPY. PIRARUBICIN HYDROCHLORIDE + 0.9% NS 250 ML
     Route: 041
     Dates: start: 20190817, end: 20190817
  6. ENDOXAN [Suspect]
     Active Substance: CYCLOPHOSPHAMIDE
     Dosage: FOURTH CYCLE OF NEOADJUVANT CHEMOTHERAPY. ENDOXAN + 0.9% NS 100 ML
     Route: 041
     Dates: start: 20190817, end: 20190817
  7. ENDOXAN [Suspect]
     Active Substance: CYCLOPHOSPHAMIDE
     Indication: INVASIVE DUCTAL BREAST CARCINOMA
     Dosage: 3 CYCLES OF NEOADJUVANT CHEMOTHERAPY. ENDOXAN + 0.9% NS (NORMAL SALINE)
     Route: 041
  8. 0.9% SODIUM CHLORIDE INJECTION [Suspect]
     Active Substance: SODIUM CHLORIDE
     Indication: MEDICATION DILUTION
     Dosage: 3 CYCLES OF NEOADJUVANT CHEMOTHERAPY. ENDOXAN + 0.9% NS
     Route: 041

REACTIONS (2)
  - Leukopenia [Recovered/Resolved]
  - Neutropenia [Recovered/Resolved]

NARRATIVE: CASE EVENT DATE: 20190825
